FAERS Safety Report 18880994 (Version 4)
Quarter: 2021Q2

REPORT INFORMATION
  Report Type: Spontaneous
  Country: US (occurrence: US)
  Receive Date: 20210212
  Receipt Date: 20210618
  Transmission Date: 20210717
  Serious: No
  Sender: FDA-Public Use
  Company Number: US-SA-2021SA033890

PATIENT
  Age: 35 Year
  Sex: Female

DRUGS (2)
  1. FABRAZYME [Suspect]
     Active Substance: AGALSIDASE BETA
     Indication: FABRY^S DISEASE
     Dosage: 100 MG (70 MG OF STRENGTH 35 MG AND 30 MG OF STRENGTH 5 MG), QOW
     Route: 041
     Dates: start: 20201028
  2. FABRAZYME [Suspect]
     Active Substance: AGALSIDASE BETA
     Dosage: 100 MG (70 MG OF STRENGTH 35 MG AND 30 MG OF STRENGTH 5 MG), QOW
     Route: 041
     Dates: start: 2021

REACTIONS (4)
  - Haemorrhoids [Unknown]
  - COVID-19 [Unknown]
  - Product dose omission issue [Unknown]
  - Pain [Unknown]

NARRATIVE: CASE EVENT DATE: 20210122
